FAERS Safety Report 4538574-2 (Version None)
Quarter: 2004Q4

REPORT INFORMATION
  Report Type: 
  Country: None (occurrence: None)
  Receive Date: 20041222
  Receipt Date: 20041210
  Transmission Date: 20050328
  Serious: Yes (Life-Threatening, Other)
  Sender: FDA-Public Use
  Company Number: GBWYE279613DEC04

PATIENT
  Age: 19 Year
  Sex: Female

DRUGS (7)
  1. TAZOCIN (PIPERACILLIN/TAZOBACTAM, INJECTION) [Suspect]
     Indication: CONDITION AGGRAVATED
     Dosage: 4.5 G 3X PER 1 DAY; INTRAVENOUS
     Route: 042
     Dates: start: 20041116, end: 20041118
  2. TAZOCIN (PIPERACILLIN/TAZOBACTAM, INJECTION) [Suspect]
     Indication: CYSTIC FIBROSIS
     Dosage: 4.5 G 3X PER 1 DAY; INTRAVENOUS
     Route: 042
     Dates: start: 20041116, end: 20041118
  3. COLOMYCIN (COLISTIN MESILAET SODIUM/SODIUM CHLORIDE) [Concomitant]
  4. FLUCLOXACILLIN (FLUCLOXACILLIN) [Concomitant]
  5. SALBUTAMOL (SALBUTAMOL) [Concomitant]
  6. ATROVENT [Concomitant]
  7. PULMOZYME [Concomitant]

REACTIONS (4)
  - CHEST PAIN [None]
  - DYSPNOEA [None]
  - INFUSION RELATED REACTION [None]
  - OXYGEN SATURATION DECREASED [None]
